FAERS Safety Report 4318813-3 (Version None)
Quarter: 2004Q1

REPORT INFORMATION
  Report Type: 
  Country: None (occurrence: None)
  Receive Date: 20040318
  Receipt Date: 20040316
  Transmission Date: 20041129
  Serious: Yes (Hospitalization)
  Sender: FDA-Public Use
  Company Number: CA-GLAXOSMITHKLINE-B0326803A

PATIENT
  Age: 60 Year
  Sex: Female
  Weight: 71.2 kg

DRUGS (5)
  1. ROPINIROLE [Suspect]
     Indication: PARKINSON'S DISEASE
     Dosage: 6MG PER DAY
     Route: 048
     Dates: start: 20030715, end: 20030906
  2. PREMARIN [Suspect]
     Indication: MENOPAUSE
     Dosage: .625MG PER DAY
     Route: 048
     Dates: start: 20000301
  3. PROVERA [Suspect]
     Indication: MENOPAUSE
     Dosage: 2.5MG PER DAY
     Route: 048
     Dates: start: 20000301
  4. SINEMET [Concomitant]
     Indication: PARKINSON'S DISEASE
     Route: 048
     Dates: start: 20030902
  5. EFFEXOR [Concomitant]
     Indication: ANXIETY
     Dosage: 37.5MG PER DAY
     Route: 048
     Dates: start: 20020423

REACTIONS (3)
  - ASTHENIA [None]
  - LOSS OF CONSCIOUSNESS [None]
  - PULMONARY EMBOLISM [None]
